FAERS Safety Report 6437574-5 (Version None)
Quarter: 2009Q4

REPORT INFORMATION
  Report Type: 
  Country: None (occurrence: None)
  Receive Date: 20091112
  Receipt Date: 20091106
  Transmission Date: 20100525
  Serious: Yes (Hospitalization)
  Sender: FDA-Public Use
  Company Number: AU-ASTRAZENECA-2009SE22376

PATIENT
  Sex: Female
  Weight: 82.9 kg

DRUGS (8)
  1. SEROQUEL [Suspect]
     Indication: ANXIETY
     Route: 048
     Dates: start: 20090701, end: 20091012
  2. SEROQUEL [Suspect]
     Indication: DELIRIUM
     Route: 048
     Dates: start: 20090701, end: 20091012
  3. SEROQUEL [Suspect]
     Indication: DEPRESSION
     Route: 048
     Dates: start: 20090701, end: 20091012
  4. SEROQUEL [Suspect]
     Route: 048
     Dates: start: 20091013
  5. SEROQUEL [Suspect]
     Route: 048
     Dates: start: 20091013
  6. SEROQUEL [Suspect]
     Route: 048
     Dates: start: 20091013
  7. VENLAFAXIN [Concomitant]
     Indication: DEPRESSION
     Route: 048
     Dates: start: 20090729, end: 20090824
  8. ESCITALOPRAM [Concomitant]
     Indication: DEPRESSION
     Route: 048
     Dates: start: 20090824

REACTIONS (1)
  - OPSOCLONUS MYOCLONUS [None]
